FAERS Safety Report 16092362 (Version 7)
Quarter: 2019Q3

REPORT INFORMATION
  Report Type: Report from Study
  Country: US (occurrence: US)
  Receive Date: 20190319
  Receipt Date: 20190807
  Transmission Date: 20191004
  Serious: Yes (Hospitalization, Other)
  Sender: FDA-Public Use
  Company Number: US-ACTELION-A-US2019-187817

PATIENT
  Age: 59 Year
  Sex: Male
  Weight: 89.8 kg

DRUGS (6)
  1. UPTRAVI [Suspect]
     Active Substance: SELEXIPAG
     Indication: PULMONARY ARTERIAL HYPERTENSION
     Dosage: 800 MCG, BID
     Route: 048
  2. ADEMPAS [Concomitant]
     Active Substance: RIOCIGUAT
  3. UPTRAVI [Suspect]
     Active Substance: SELEXIPAG
     Dosage: 200 MCG, BID
     Route: 048
  4. UPTRAVI [Suspect]
     Active Substance: SELEXIPAG
     Dosage: 1200 MCG, BID
     Route: 048
  5. UPTRAVI [Suspect]
     Active Substance: SELEXIPAG
     Dosage: 600 MCG, BID
     Route: 048
  6. ELIQUIS [Concomitant]
     Active Substance: APIXABAN

REACTIONS (24)
  - Intentional self-injury [Unknown]
  - Cardiac failure congestive [Unknown]
  - Muscle spasms [Recovering/Resolving]
  - Diarrhoea [Unknown]
  - Dyspnoea [Unknown]
  - Hypotension [Unknown]
  - Urinary tract infection [Recovered/Resolved]
  - Asthenia [Unknown]
  - Feeling guilty [Unknown]
  - Gastroenteritis salmonella [Unknown]
  - Smoke sensitivity [Unknown]
  - Peripheral swelling [Unknown]
  - Migraine [Recovered/Resolved]
  - Grief reaction [Recovered/Resolved]
  - Pleurisy [Unknown]
  - Myalgia [Recovering/Resolving]
  - Headache [Not Recovered/Not Resolved]
  - Cellulitis [Unknown]
  - Gastrointestinal motility disorder [Unknown]
  - Eye pain [Unknown]
  - Syncope [Unknown]
  - Gastrointestinal infection [Unknown]
  - HIV infection [Unknown]
  - Renal failure [Unknown]

NARRATIVE: CASE EVENT DATE: 201906
